FAERS Safety Report 5171227-9 (Version None)
Quarter: 2006Q4

REPORT INFORMATION
  Report Type: 
  Country: None (occurrence: None)
  Receive Date: 20061213
  Receipt Date: 20061205
  Transmission Date: 20070319
  Serious: Yes (Other)
  Sender: FDA-Public Use
  Company Number: JP-BRISTOL-MYERS SQUIBB COMPANY-13606777

PATIENT
  Age: 4 Year
  Sex: Male

DRUGS (5)
  1. ENDOXAN [Suspect]
     Indication: MALIGNANT NEOPLASM OF PLEURA
  2. ETOPOSIDE [Concomitant]
  3. DOXORUBICIN HCL [Concomitant]
  4. CISPLATIN [Concomitant]
  5. VINCRISTINE SULFATE [Concomitant]

REACTIONS (1)
  - ACUTE LYMPHOCYTIC LEUKAEMIA [None]
